FAERS Safety Report 4328705-1 (Version None)
Quarter: 2004Q1

REPORT INFORMATION
  Report Type: 
  Country: None (occurrence: None)
  Receive Date: 20040329
  Receipt Date: 20031209
  Transmission Date: 20041129
  Serious: Yes (Hospitalization)
  Sender: FDA-Public Use
  Company Number: 03P-163-0241247-00

PATIENT
  Age: 34 Year
  Sex: Female

DRUGS (3)
  1. HUMIRA [Suspect]
     Indication: RHEUMATOID ARTHRITIS
     Dosage: 40 MG, 2 IN 1 WK, SUBCUTANEOUS
     Route: 058
     Dates: start: 20030815, end: 20031009
  2. IBUPROFEN [Concomitant]
  3. ESOMEPRAZOLE [Concomitant]

REACTIONS (3)
  - AMENORRHOEA [None]
  - BLOOD PRESSURE INCREASED [None]
  - HEADACHE [None]
